FAERS Safety Report 8880322 (Version 3)
Quarter: 2013Q1

REPORT INFORMATION
  Report Type: Spontaneous
  Country: ES (occurrence: ES)
  Receive Date: 20121031
  Receipt Date: 20130122
  Transmission Date: 20140127
  Serious: Yes (Hospitalization, Disabling, Other)
  Sender: FDA-Public Use
  Company Number: ES-MERCK-1210ESP010754

PATIENT
  Age: 72 Year
  Sex: Female

DRUGS (10)
  1. COZAAR 50 MG [Suspect]
     Indication: HYPERTENSION
     Dosage: 50 MG, QD
     Route: 048
     Dates: start: 2008, end: 20120907
  2. COZAAR 50 MG [Suspect]
     Dosage: 50 MG, QD
     Route: 048
     Dates: start: 20121012, end: 20121012
  3. COZAAR 50 MG [Suspect]
     Dosage: 50 MG, QD
     Dates: start: 20121013, end: 20121013
  4. CALCIUM (UNSPECIFIED) (+) VITAMIN D (UNSPECIFIED) [Suspect]
     Dosage: UNK
     Dates: start: 20121022
  5. OMEPRAZOLE [Suspect]
     Dosage: UNK
     Dates: end: 201209
  6. OMEPRAZOLE [Suspect]
     Dosage: UNK
     Dates: start: 20121024, end: 20121024
  7. CLEXANE (ENOXAPARIN SODIUM) [Concomitant]
     Indication: PROPHYLAXIS
     Dosage: UNK
     Dates: start: 20120811, end: 20120921
  8. ADIRO [Concomitant]
     Indication: PROPHYLAXIS
     Dosage: UNK
     Dates: start: 20120921, end: 201210
  9. PROPOFOL [Concomitant]
     Indication: ANAESTHESIA
     Dosage: UNK
     Dates: start: 20120811
  10. FENTANYL [Concomitant]
     Indication: ANAESTHESIA
     Dosage: UNK
     Dates: start: 20120811

REACTIONS (4)
  - Toxic skin eruption [Recovering/Resolving]
  - Ankle fracture [Recovered/Resolved]
  - Renal colic [Recovered/Resolved]
  - Urinary tract infection [Recovered/Resolved]
